FAERS Safety Report 14141056 (Version 1)
Quarter: 2017Q4

REPORT INFORMATION
  Report Type: Report from Study
  Country: UM (occurrence: US)
  Receive Date: 20171030
  Receipt Date: 20171030
  Transmission Date: 20180321
  Serious: No
  Sender: FDA-Public Use
  Company Number: UM-AMGEN-USASL2017162537

PATIENT
  Sex: Female

DRUGS (1)
  1. ENBREL [Suspect]
     Active Substance: ETANERCEPT
     Indication: PRODUCT USED FOR UNKNOWN INDICATION
     Dosage: UNK, QWK
     Route: 065

REACTIONS (2)
  - Wrong technique in product usage process [Unknown]
  - Accidental exposure to product [Unknown]
